FAERS Safety Report 15154900 (Version 3)
Quarter: 2019Q2

REPORT INFORMATION
  Report Type: Spontaneous
  Country: IS (occurrence: IS)
  Receive Date: 20180717
  Receipt Date: 20190628
  Transmission Date: 20190711
  Serious: Yes (Life-Threatening, Hospitalization, Other)
  Sender: FDA-Public Use
  Company Number: IS-PURDUE PHARMA-GBR-2018-0057672

PATIENT
  Age: 77 Year
  Sex: Female

DRUGS (10)
  1. POTASSIUM [Concomitant]
     Active Substance: POTASSIUM
     Indication: HYPOKALAEMIA
     Dosage: UNK
     Route: 048
  2. CONTALGIN [Suspect]
     Active Substance: MORPHINE SULFATE
     Indication: PAIN IN EXTREMITY
     Dosage: UNK
     Route: 065
  3. CONTALGIN [Suspect]
     Active Substance: MORPHINE SULFATE
     Indication: BACK PAIN
     Dosage: UNK
     Route: 065
  4. TRADOLAN [Suspect]
     Active Substance: TRAMADOL
     Indication: PAIN IN EXTREMITY
     Dosage: UNK (INCREASED DOSES)
     Route: 065
  5. LOPERAMID [Concomitant]
     Active Substance: LOPERAMIDE
  6. PARACETAMOL [Concomitant]
     Active Substance: ACETAMINOPHEN
     Indication: PAIN IN EXTREMITY
     Dosage: UNK
  7. PARKODEIN [Suspect]
     Active Substance: ACETAMINOPHEN\CODEINE PHOSPHATE
     Indication: BACK PAIN
     Dosage: UNK (PAIN-RELIEF MEDICATION WAS INCREASED AT THE BEGINNING OF  HOSPITALIZATION)
     Route: 065
  8. TRADOLAN [Suspect]
     Active Substance: TRAMADOL
     Indication: BACK PAIN
     Dosage: UNK
     Route: 065
  9. PARKODEIN [Suspect]
     Active Substance: ACETAMINOPHEN\CODEINE PHOSPHATE
     Dosage: UNK
     Route: 065
  10. PARACETAMOL [Concomitant]
     Active Substance: ACETAMINOPHEN
     Indication: BACK PAIN
     Dosage: UNK

REACTIONS (8)
  - Hypothalamo-pituitary disorder [Recovered/Resolved]
  - Adrenal disorder [Recovered/Resolved]
  - Respiratory acidosis [Recovered/Resolved]
  - Blood prolactin increased [Recovered/Resolved]
  - Hypokalaemia [Recovered/Resolved]
  - Cortisol decreased [Recovered/Resolved]
  - Respiratory disorder [Recovered/Resolved]
  - Condition aggravated [Recovered/Resolved]
